FAERS Safety Report 16881793 (Version 1)
Quarter: 2019Q4

REPORT INFORMATION
  Report Type: Spontaneous
  Country: GB (occurrence: GB)
  Receive Date: 20191003
  Receipt Date: 20191003
  Transmission Date: 20200122
  Serious: Yes (Death)
  Sender: FDA-Public Use
  Company Number: GB-PFIZER INC-2019424916

PATIENT
  Age: 59 Year
  Sex: Male
  Weight: 87 kg

DRUGS (15)
  1. BECLOMETASONE [Concomitant]
     Active Substance: BECLOMETHASONE DIPROPIONATE
  2. COTRIMOXAZOLE [Concomitant]
     Active Substance: SULFAMETHOXAZOLE\TRIMETHOPRIM
  3. ALENDRONIC ACID [Concomitant]
     Active Substance: ALENDRONIC ACID
  4. DERMOL [BENZALKONIUM CHLORIDE;CHLORHEXIDINE HYDROCHLORIDE;ISOPROPYL MY [Concomitant]
  5. PULMOZYME [Concomitant]
     Active Substance: DORNASE ALFA
  6. METHYLPREDNISOLONE. [Concomitant]
     Active Substance: METHYLPREDNISOLONE
  7. HYDROXYCHLOROQUINE [Concomitant]
     Active Substance: HYDROXYCHLOROQUINE
  8. PREDNISOLONE. [Concomitant]
     Active Substance: PREDNISOLONE
  9. RANITIDINE. [Concomitant]
     Active Substance: RANITIDINE
  10. RITUXIMAB. [Concomitant]
     Active Substance: RITUXIMAB
  11. METHOTREXATE SODIUM. [Suspect]
     Active Substance: METHOTREXATE SODIUM
     Indication: PEMPHIGUS
     Dosage: 15 MG, UNK
     Route: 048
     Dates: start: 20190520, end: 20190902
  12. CASPOFUNGIN [Concomitant]
     Active Substance: CASPOFUNGIN
  13. MEROPENEM. [Concomitant]
     Active Substance: MEROPENEM
  14. FOLIC ACID. [Concomitant]
     Active Substance: FOLIC ACID
  15. DERMOVATE [Concomitant]
     Active Substance: CLOBETASOL

REACTIONS (4)
  - Respiratory failure [Fatal]
  - Off label use [Unknown]
  - Pulmonary fibrosis [Fatal]
  - Product use in unapproved indication [Unknown]

NARRATIVE: CASE EVENT DATE: 20190902
